FAERS Safety Report 7130388-2 (Version None)
Quarter: 2010Q4

REPORT INFORMATION
  Report Type: 
  Country: None (occurrence: None)
  Receive Date: 20101201
  Receipt Date: 20101117
  Transmission Date: 20110411
  Serious: Yes (Other)
  Sender: FDA-Public Use
  Company Number: PHHY2010DE79776

PATIENT
  Sex: Female

DRUGS (4)
  1. CGS 20267 T30748+ [Suspect]
     Indication: BREAST CANCER
     Dosage: 2.5 MG DAILY
     Route: 048
     Dates: start: 20090217, end: 20090701
  2. BISOPROLOL FUMARATE [Concomitant]
     Dosage: 5 MG
     Dates: start: 20020101
  3. HYDROCHLOROTHIAZIDE [Concomitant]
     Dosage: 25 MG
     Dates: start: 20020101
  4. VOTUM [Concomitant]
     Dosage: 40 MG
     Dates: start: 20020101

REACTIONS (3)
  - ARTHRALGIA [None]
  - MYALGIA [None]
  - SLEEP DISORDER [None]
